FAERS Safety Report 4887493-0 (Version None)
Quarter: 2006Q1

REPORT INFORMATION
  Report Type: 
  Country: None (occurrence: None)
  Receive Date: 20060123
  Receipt Date: 20060116
  Transmission Date: 20060701
  Serious: Yes (Life-Threatening)
  Sender: FDA-Public Use
  Company Number: 2006CG00119

PATIENT
  Age: 0 Day
  Sex: Female

DRUGS (3)
  1. TENORMIN [Suspect]
     Route: 064
     Dates: end: 20051028
  2. NEO-MERCAZOLE TAB [Concomitant]
     Indication: HYPERTHYROIDISM
     Route: 064
     Dates: end: 20050920
  3. DEROXAT [Concomitant]
     Indication: DEPRESSION
     Route: 064

REACTIONS (6)
  - BRADYCARDIA NEONATAL [None]
  - CYANOSIS NEONATAL [None]
  - DRUG EXPOSURE DURING PREGNANCY [None]
  - HYPOTONIA NEONATAL [None]
  - HYPOVENTILATION NEONATAL [None]
  - PLACENTAL DISORDER [None]
